FAERS Safety Report 9203699 (Version 1)
Quarter: 2013Q1

REPORT INFORMATION
  Report Type: Spontaneous
  Country: US (occurrence: None)
  Receive Date: 20130329
  Receipt Date: 20130329
  Transmission Date: 20140127
  Serious: Yes (Other)
  Sender: FDA-Public Use
  Company Number: None

PATIENT
  Age: 55 Year
  Sex: Female
  Weight: 81.65 kg

DRUGS (2)
  1. LOVASTATIN [Suspect]
     Indication: BLOOD CHOLESTEROL INCREASED
     Dosage: 10 MG TAB 1 EVERY DAY
     Dates: start: 20090212, end: 20090216
  2. LOVASTATIN [Suspect]
     Indication: BLOOD CHOLESTEROL INCREASED
     Dates: start: 20130212, end: 20130224

REACTIONS (6)
  - Abdominal pain [None]
  - Gastrointestinal inflammation [None]
  - Intestinal ulcer [None]
  - Large intestinal ulcer [None]
  - Eye swelling [None]
  - Drug hypersensitivity [None]
